FAERS Safety Report 4426756-X (Version None)
Quarter: 2004Q3

REPORT INFORMATION
  Report Type: 
  Country: None (occurrence: None)
  Receive Date: 20040811
  Receipt Date: 20040729
  Transmission Date: 20050211
  Serious: Yes (Other)
  Sender: FDA-Public Use
  Company Number: 2004052344

PATIENT
  Sex: Male

DRUGS (3)
  1. AMLODIPINE [Suspect]
     Indication: ILL-DEFINED DISORDER
     Dosage: ORAL
     Route: 048
  2. TELMISARTAN [Concomitant]
  3. INDAPAMIDE [Concomitant]

REACTIONS (2)
  - SWELLING FACE [None]
  - SWOLLEN TONGUE [None]
